FAERS Safety Report 4374609-8 (Version None)
Quarter: 2004Q2

REPORT INFORMATION
  Report Type: 
  Country: None (occurrence: None)
  Receive Date: 20040609
  Receipt Date: 20040604
  Transmission Date: 20050107
  Serious: Yes (Other)
  Sender: FDA-Public Use
  Company Number: GB-ROCHE-370123

PATIENT
  Age: 19 Year
  Sex: Female

DRUGS (3)
  1. ORLISTAT [Suspect]
     Indication: OBESITY
     Route: 048
     Dates: start: 20040407, end: 20040409
  2. BECLAZONE [Concomitant]
     Indication: ASTHMA
  3. SALAMOL [Concomitant]
     Indication: ASTHMA

REACTIONS (1)
  - ASTHMA [None]
